FAERS Safety Report 17829330 (Version 1)
Quarter: 2020Q2

REPORT INFORMATION
  Report Type: Spontaneous
  Country: US (occurrence: US)
  Receive Date: 20200527
  Receipt Date: 20200527
  Transmission Date: 20200714
  Serious: No
  Sender: FDA-Public Use
  Company Number: US-UCBSA-2019018470

PATIENT
  Age: 38 Year
  Sex: Female
  Weight: 74.3 kg

DRUGS (3)
  1. FLEXERIL [CEFIXIME] [Concomitant]
     Active Substance: CEFIXIME
     Indication: PRODUCT USED FOR UNKNOWN INDICATION
  2. CIMZIA [Suspect]
     Active Substance: CERTOLIZUMAB PEGOL
     Indication: PSORIASIS
     Dosage: 400 MILLIGRAM, EV 2 WEEKS(QOW)
     Route: 058
     Dates: start: 20190204, end: 20190624
  3. GABAPENTIN. [Concomitant]
     Active Substance: GABAPENTIN
     Indication: PRODUCT USED FOR UNKNOWN INDICATION

REACTIONS (6)
  - Urinary tract infection [Recovered/Resolved]
  - Myalgia [Recovered/Resolved]
  - Insomnia [Not Recovered/Not Resolved]
  - Fatigue [Unknown]
  - Chest pain [Recovered/Resolved]
  - Arthralgia [Recovered/Resolved]

NARRATIVE: CASE EVENT DATE: 2019
